FAERS Safety Report 5728676-7 (Version None)
Quarter: 2008Q2

REPORT INFORMATION
  Report Type: 
  Country: None (occurrence: None)
  Receive Date: 20080430
  Receipt Date: 20080415
  Transmission Date: 20081010
  Serious: Yes (Other)
  Sender: FDA-Public Use
  Company Number: 8032110

PATIENT
  Age: 33 Year
  Sex: Male

DRUGS (3)
  1. KEPPRA [Suspect]
     Indication: EPILEPSY
     Dosage: 3000 MG /D PO
     Route: 048
  2. KEPPRA [Suspect]
     Indication: EPILEPSY
     Dosage: PO
     Route: 048
  3. VALPROIC ACID [Suspect]
     Indication: EPILEPSY
     Dosage: 1500 MG /D PO
     Route: 048

REACTIONS (2)
  - COGNITIVE DISORDER [None]
  - LEUKOPENIA [None]
